FAERS Safety Report 19663351 (Version 1)
Quarter: 2021Q3

REPORT INFORMATION
  Report Type: Report from Study
  Country: US (occurrence: US)
  Receive Date: 20210805
  Receipt Date: 20210805
  Transmission Date: 20211014
  Serious: No
  Sender: FDA-Public Use
  Company Number: NVSC2021US173702

PATIENT
  Age: 59 Year
  Sex: Female

DRUGS (1)
  1. COSENTYX [Suspect]
     Active Substance: SECUKINUMAB
     Indication: PSORIASIS
     Dosage: 300 MG, QW
     Route: 060
     Dates: start: 20210711

REACTIONS (7)
  - Pyrexia [Recovering/Resolving]
  - Chills [Recovering/Resolving]
  - Oropharyngeal pain [Recovering/Resolving]
  - Product dose omission issue [Unknown]
  - Incorrect route of product administration [Unknown]
  - Viral infection [Recovering/Resolving]
  - Nasal congestion [Recovering/Resolving]

NARRATIVE: CASE EVENT DATE: 20210721
